FAERS Safety Report 8599865-1 (Version None)
Quarter: 2012Q3

REPORT INFORMATION
  Report Type: 
  Country: None (occurrence: None)
  Receive Date: 20120816
  Receipt Date: 20120522
  Transmission Date: 20120928
  Serious: No
  Sender: FDA-Public Use
  Company Number: US-AMGEN-USASP2012024505

PATIENT
  Age: 17 Year
  Sex: Male
  Weight: 123.7 kg

DRUGS (2)
  1. OMEPRAZOLE [Concomitant]
     Indication: ABDOMINAL PAIN
     Dosage: 20 MG, QD
     Dates: start: 20120201
  2. NPLATE [Suspect]
     Indication: IDIOPATHIC THROMBOCYTOPENIC PURPURA
     Dosage: 720 MUG, QWK
     Dates: start: 20111206, end: 20120416

REACTIONS (4)
  - DIARRHOEA [None]
  - VOMITING [None]
  - ABDOMINAL PAIN [None]
  - NAUSEA [None]
